FAERS Safety Report 7254268-7 (Version None)
Quarter: 2011Q1

REPORT INFORMATION
  Report Type: 
  Country: None (occurrence: None)
  Receive Date: 20110129
  Receipt Date: 20100207
  Transmission Date: 20110831
  Serious: No
  Sender: FDA-Public Use
  Company Number: US-ABBOTT-10P-163-0620173-00

PATIENT
  Sex: Female
  Weight: 72.186 kg

DRUGS (2)
  1. HUMIRA [Suspect]
     Indication: CROHN'S DISEASE
     Dosage: DAY 1
     Dates: start: 20100115
  2. FLAGYL [Concomitant]
     Indication: PRODUCT USED FOR UNKNOWN INDICATION
     Route: 048
     Dates: start: 20100116

REACTIONS (9)
  - HEADACHE [None]
  - NASAL CONGESTION [None]
  - NECK PAIN [None]
  - LYMPH NODE PAIN [None]
  - TOOTHACHE [None]
  - SINUSITIS [None]
  - ABNORMAL SENSATION IN EYE [None]
  - FUNGAL INFECTION [None]
  - DRUG DOSE OMISSION [None]
